FAERS Safety Report 8921506 (Version 1)
Quarter: 2012Q4

REPORT INFORMATION
  Report Type: 
  Country: US (occurrence: US)
  Receive Date: 20121122
  Receipt Date: 20121122
  Transmission Date: 20130627
  Serious: Yes (Other)
  Sender: FDA-Public Use
  Company Number: US-BIOGENIDEC-2012BI054172

PATIENT
  Age: 41 Year
  Sex: Female
  Weight: 89 kg

DRUGS (13)
  1. AVONEX [Suspect]
     Indication: MULTIPLE SCLEROSIS
     Route: 030
     Dates: start: 19970101
  2. ENABLEX EXTENDED RELEASE [Concomitant]
     Route: 048
  3. LEXAPRO [Concomitant]
     Route: 048
  4. HYDROCODONE-ACETAMINOPHEN [Concomitant]
  5. IBUPROFEN [Concomitant]
  6. MAXALT [Concomitant]
  7. PREDNISONE [Concomitant]
  8. GILDESS FE [Concomitant]
  9. AMANTADINE [Concomitant]
  10. CLINDAMYCIN [Concomitant]
  11. KETOROLAC [Concomitant]
     Route: 030
  12. CHANTIX [Concomitant]
  13. VERAMYST [Concomitant]

REACTIONS (1)
  - Hysterectomy [Recovered/Resolved]
